FAERS Safety Report 8241512-2 (Version None)
Quarter: 2012Q1

REPORT INFORMATION
  Report Type: 
  Country: None (occurrence: None)
  Receive Date: 20120328
  Receipt Date: 20110803
  Transmission Date: 20120608
  Serious: No
  Sender: FDA-Public Use
  Company Number: US-COVIDIEN/TYCO HEALTHCARE/MALLINCKRODT-T201101541

PATIENT

DRUGS (1)
  1. METHADOSE [Suspect]
     Dosage: UNK

REACTIONS (1)
  - HYPOAESTHESIA [None]
